FAERS Safety Report 10223049 (Version 2)
Quarter: 2015Q1

REPORT INFORMATION
  Report Type: Spontaneous
  Country: US (occurrence: None)
  Receive Date: 20140605
  Receipt Date: 20150120
  Transmission Date: 20150720
  Serious: Yes (Hospitalization)
  Sender: FDA-Public Use
  Company Number: UNT-2014-000512

PATIENT
  Age: 47 Year
  Sex: Female
  Weight: 93 kg

DRUGS (4)
  1. XARELTO [Concomitant]
     Active Substance: RIVAROXABAN
  2. TRACLEER [Concomitant]
     Active Substance: BOSENTAN\BOSENTAN MONOHYDRATE
  3. REVATIO (SILDENAFIL CITRATE) [Concomitant]
  4. REMODULIN [Suspect]
     Active Substance: TREPROSTINIL
     Indication: PULMONARY ARTERIAL HYPERTENSION
     Dosage: 0.100 UG/KG, CONTINUING, IV DRIP
     Route: 041
     Dates: start: 20110726

REACTIONS (1)
  - Device occlusion [None]

NARRATIVE: CASE EVENT DATE: 20140509
